FAERS Safety Report 8601122-1 (Version None)
Quarter: 2012Q3

REPORT INFORMATION
  Report Type: 
  Country: None (occurrence: None)
  Receive Date: 20120806
  Receipt Date: 20120725
  Transmission Date: 20120928
  Serious: Yes (Death, Other)
  Sender: FDA-Public Use
  Company Number: 2012MA009118

PATIENT
  Age: 43 Year
  Sex: Male

DRUGS (2)
  1. KADIAN [Suspect]
     Indication: INTENTIONAL DRUG MISUSE
     Dosage: ;PO
     Route: 048
  2. DIAZEPAM [Suspect]
     Indication: INTENTIONAL DRUG MISUSE
     Dosage: ;PO
     Route: 048

REACTIONS (4)
  - PNEUMONIA ASPIRATION [None]
  - CARDIO-RESPIRATORY DISTRESS [None]
  - UNRESPONSIVE TO STIMULI [None]
  - NO THERAPEUTIC RESPONSE [None]
